FAERS Safety Report 4436329-0 (Version None)
Quarter: 2004Q3

REPORT INFORMATION
  Report Type: 
  Country: None (occurrence: None)
  Receive Date: 20040728
  Receipt Date: 20030827
  Transmission Date: 20050211
  Serious: Yes (Death, Hospitalization)
  Sender: FDA-Public Use
  Company Number: 201139

PATIENT
  Age: 62 Year
  Sex: Male

DRUGS (3)
  1. RITUXAN [Suspect]
     Indication: NON-HODGKIN'S LYMPHOMA
     Dosage: SINGLE, INTRAVENOUS
     Route: 042
     Dates: start: 20030204, end: 20030204
  2. IN-111 ZEVALIN (INDIUM-111, IBRITUMOMAB TIUXETAN) [Suspect]
     Indication: NON-HODGKIN'S LYMPHOMA
     Dosage: SINGLE, INTRAVENOUS
     Route: 042
     Dates: start: 20030204, end: 20030204
  3. IBRITUMOMAB TIUXETAN (IBRITUMOMAB TIUXETAN) [Suspect]
     Indication: NON-HODGKIN'S LYMPHOMA
     Dosage: SINGLE, INTRAVENOUS
     Route: 042
     Dates: start: 20030204, end: 20030204

REACTIONS (2)
  - CARDIAC FAILURE CONGESTIVE [None]
  - DISEASE PROGRESSION [None]
